FAERS Safety Report 4430690-9 (Version None)
Quarter: 2004Q3

REPORT INFORMATION
  Report Type: 
  Country: None (occurrence: None)
  Receive Date: 20040721
  Receipt Date: 20040312
  Transmission Date: 20050211
  Serious: Yes (Hospitalization)
  Sender: FDA-Public Use
  Company Number: WAES 0403USA01240

PATIENT
  Age: 88 Year
  Sex: Female

DRUGS (1)
  1. VIOXX [Suspect]
     Dosage: PO
     Route: 048

REACTIONS (1)
  - PLATELET COUNT DECREASED [None]
